FAERS Safety Report 8912347 (Version 1)
Quarter: 2012Q4

REPORT INFORMATION
  Report Type: 
  Country: US (occurrence: US)
  Receive Date: 20121116
  Receipt Date: 20121116
  Transmission Date: 20130627
  Serious: Yes (Other)
  Sender: FDA-Public Use
  Company Number: US-ELI_LILLY_AND_COMPANY-US201211004380

PATIENT

DRUGS (2)
  1. GEMCITABINE HYDROCHLORIDE [Suspect]
     Indication: NEOPLASM MALIGNANT
     Dosage: 800 mg/m2, other
     Route: 042
  2. SUNITINIB [Concomitant]
     Indication: NEOPLASM MALIGNANT
     Dosage: 25 mg, UNK
     Route: 048

REACTIONS (2)
  - Ejection fraction decreased [Unknown]
  - Toxicity to various agents [None]
